FAERS Safety Report 14368416 (Version 1)
Quarter: 2018Q1

REPORT INFORMATION
  Report Type: Spontaneous
  Country: US (occurrence: US)
  Receive Date: 20180109
  Receipt Date: 20180109
  Transmission Date: 20180509
  Serious: Yes (Hospitalization)
  Sender: FDA-Public Use
  Company Number: US-PURDUE-GBR-2017-0051912

PATIENT
  Age: 33 Year
  Sex: Female

DRUGS (4)
  1. BUPIVICAINE [Suspect]
     Active Substance: BUPIVACAINE
     Indication: SPINAL ANAESTHESIA
     Dosage: 75% (1.5ML)
     Route: 037
  2. PITOCIN [Concomitant]
     Active Substance: OXYTOCIN
     Route: 042
  3. MORPHINE SULFATE. [Suspect]
     Active Substance: MORPHINE SULFATE
     Indication: SPINAL ANAESTHESIA
     Dosage: 150 MCG, UNK
     Route: 037
  4. ONDANSETRON [Concomitant]
     Active Substance: ONDANSETRON
     Route: 042

REACTIONS (4)
  - Bradycardia [Recovered/Resolved]
  - Exposure during pregnancy [Unknown]
  - Nausea [Recovered/Resolved]
  - Hypothermia [Recovered/Resolved]
